FAERS Safety Report 9365932 (Version 2)
Quarter: 2013Q3

REPORT INFORMATION
  Report Type: Spontaneous
  Country: US (occurrence: US)
  Receive Date: 20130625
  Receipt Date: 20130806
  Transmission Date: 20140515
  Serious: No
  Sender: FDA-Public Use
  Company Number: US-PFIZER INC-2013187616

PATIENT
  Age: 50 Year
  Sex: Male
  Weight: 47.17 kg

DRUGS (1)
  1. FLECTOR [Suspect]
     Indication: INTERVERTEBRAL DISC PROTRUSION
     Dosage: EVERY 12 HOURS
     Dates: start: 201306

REACTIONS (1)
  - Drug ineffective [Unknown]
